FAERS Safety Report 7450720-X (Version None)
Quarter: 2011Q2

REPORT INFORMATION
  Report Type: 
  Country: None (occurrence: None)
  Receive Date: 20110502
  Receipt Date: 20110427
  Transmission Date: 20111010
  Serious: Yes (Hospitalization, Other)
  Sender: FDA-Public Use
  Company Number: CA-ABBOTT-10P-028-0668495-00

PATIENT
  Sex: Female
  Weight: 60.836 kg

DRUGS (11)
  1. RATIO-DOMPERIDONE [Concomitant]
     Indication: DYSPEPSIA
     Route: 048
     Dates: start: 19890101
  2. NEXIUM [Concomitant]
     Indication: INTESTINAL FUNCTIONAL DISORDER
     Route: 048
     Dates: start: 19890101
  3. APO-ACETAMINOPHEN [Concomitant]
     Indication: PRODUCT USED FOR UNKNOWN INDICATION
     Dosage: 1 TAB AS NEEDED
     Route: 048
  4. CALCIUM W/VITAMIN D [Concomitant]
     Indication: MINERAL SUPPLEMENTATION
     Dosage: 2 IN 1 DAY, 500MG /400MG
     Route: 048
     Dates: start: 19960101
  5. RATIO-SERTRALINE [Concomitant]
     Indication: PHOBIA
     Route: 048
     Dates: start: 20010101
  6. TIOTROPIUM [Concomitant]
  7. HUMIRA [Suspect]
     Indication: RHEUMATOID ARTHRITIS
     Route: 058
     Dates: start: 20071031
  8. TIOTROPIUM [Concomitant]
     Indication: LUNG DISORDER
     Route: 055
     Dates: start: 20010101
  9. FOLIC ACID [Concomitant]
     Indication: PRODUCT USED FOR UNKNOWN INDICATION
     Route: 048
     Dates: start: 20110101
  10. MICARDIS [Concomitant]
     Indication: BLOOD PRESSURE
     Route: 048
     Dates: start: 19960101
  11. RATIO-SERTRALINE [Concomitant]
     Indication: ANXIETY

REACTIONS (8)
  - PULMONARY CONGESTION [None]
  - PYREXIA [None]
  - DYSPNOEA EXERTIONAL [None]
  - WEIGHT DECREASED [None]
  - THYROID NEOPLASM [None]
  - COUGH [None]
  - PULMONARY EMBOLISM [None]
  - CHEST DISCOMFORT [None]
